FAERS Safety Report 8204044-3 (Version None)
Quarter: 2012Q1

REPORT INFORMATION
  Report Type: 
  Country: None (occurrence: None)
  Receive Date: 20120313
  Receipt Date: 20120312
  Transmission Date: 20120608
  Serious: Yes (Other)
  Sender: FDA-Public Use
  Company Number: US-PFIZER INC-2012065102

PATIENT
  Sex: Female
  Weight: 77.098 kg

DRUGS (2)
  1. CHANTIX [Suspect]
     Indication: SMOKING CESSATION THERAPY
     Dosage: 0.5 MG, DAILY
     Dates: start: 20090101, end: 20090101
  2. HYDROCODONE [Concomitant]
     Indication: PAIN
     Dosage: 7.5 MG, UNK

REACTIONS (1)
  - CEREBROVASCULAR ACCIDENT [None]
